FAERS Safety Report 9839296 (Version 1)
Quarter: 2014Q1

REPORT INFORMATION
  Report Type: Report from Study
  Country: BR (occurrence: BR)
  Receive Date: 20140123
  Receipt Date: 20140123
  Transmission Date: 20141002
  Serious: Yes (Other)
  Sender: FDA-Public Use
  Company Number: PHHY2014BR005887

PATIENT
  Sex: Female
  Weight: 68 kg

DRUGS (1)
  1. RITALINA [Suspect]
     Indication: ATTENTION DEFICIT/HYPERACTIVITY DISORDER
     Dosage: 5 DF, DAILY
     Dates: end: 201312

REACTIONS (2)
  - Bipolar disorder [Unknown]
  - Drug administered to patient of inappropriate age [Unknown]
